FAERS Safety Report 6619484-3 (Version None)
Quarter: 2010Q1

REPORT INFORMATION
  Report Type: 
  Country: None (occurrence: None)
  Receive Date: 20100309
  Receipt Date: 20100305
  Transmission Date: 20100710
  Serious: Yes (Life-Threatening, Hospitalization)
  Sender: FDA-Public Use
  Company Number: US-ELI_LILLY_AND_COMPANY-US201001002150

PATIENT
  Sex: Male
  Weight: 43.084 kg

DRUGS (23)
  1. PEMETREXED [Suspect]
     Indication: NON-SMALL CELL LUNG CANCER
     Dosage: 500 MG/M2, OTHER
     Route: 042
     Dates: start: 20091216
  2. PACLITAXEL [Suspect]
     Indication: NON-SMALL CELL LUNG CANCER
     Dosage: 260 MG/M2, OTHER
     Route: 042
     Dates: start: 20091216
  3. FAMOTIDINE [Concomitant]
     Dosage: 40 MG, UNK
     Route: 048
  4. CARVEDILOL [Concomitant]
     Dosage: 6.25 MG, 2/D
     Route: 048
  5. HEPARIN [Concomitant]
     Dosage: 5000 U, EVERY 8 HRS
     Route: 058
  6. ALBUTEROL [Concomitant]
     Dosage: UNK, 4/D
     Route: 055
  7. SIMVASTATIN [Concomitant]
     Dosage: 40 MG, UNK
     Route: 048
  8. ASPIRIN [Concomitant]
     Dosage: 325 MEQ, UNK
     Route: 048
  9. CLOPIDOGREL [Concomitant]
     Dosage: 75 MG, UNK
  10. DOCUSATE [Concomitant]
     Dosage: 200 MG, UNK
     Route: 048
  11. SENNOSIDE [Concomitant]
     Dosage: UNK, EACH EVENING
     Route: 048
  12. CEFTRIAXONE [Concomitant]
     Dosage: 1000 MG, OTHER
     Route: 042
  13. DOXYCYCLINE [Concomitant]
     Dosage: 100 MG, UNK
     Route: 042
  14. GUAIFENESIN [Concomitant]
     Dosage: 400 MG, EVERY 4 HRS
     Route: 048
  15. NITROGLYCERIN [Concomitant]
     Dosage: 0.4 MG, AS NEEDED
     Route: 058
  16. POTASSIUM CHLORIDE [Concomitant]
     Dosage: UNK, AS NEEDED
     Route: 048
  17. MAGNESIUM SULFATE [Concomitant]
     Dosage: 2 G, AS NEEDED
     Route: 042
  18. CALCIUM GLUCONATE [Concomitant]
     Dosage: UNK, AS NEEDED
     Route: 042
  19. BISACODYL [Concomitant]
     Dosage: 10 MG, AS NEEDED
     Route: 054
  20. ACETAMINOPHEN [Concomitant]
     Dosage: 650 MG, AS NEEDED
     Route: 048
  21. ONDANSETRON [Concomitant]
     Dosage: 4 MG, AS NEEDED
     Route: 042
  22. FOLIC ACID [Concomitant]
  23. VITAMIN B-12 [Concomitant]

REACTIONS (1)
  - INFARCTION [None]
